FAERS Safety Report 17462618 (Version 1)
Quarter: 2020Q1

REPORT INFORMATION
  Report Type: Report from Study
  Country: CN (occurrence: CN)
  Receive Date: 20200226
  Receipt Date: 20200226
  Transmission Date: 20200409
  Serious: Yes (Hospitalization)
  Sender: FDA-Public Use
  Company Number: CN-BRISTOL-MYERS SQUIBB COMPANY-BMS-2020-016602

PATIENT
  Age: 62 Year
  Sex: Male

DRUGS (1)
  1. NIVOLUMAB [Suspect]
     Active Substance: NIVOLUMAB
     Indication: NON-SMALL CELL LUNG CANCER
     Dosage: 140 MILLIGRAM, Q2WK
     Route: 042
     Dates: start: 20191223

REACTIONS (1)
  - White blood cell count increased [Unknown]

NARRATIVE: CASE EVENT DATE: 20200127
